FAERS Safety Report 19620583 (Version 1)
Quarter: 2021Q3

REPORT INFORMATION
  Report Type: Spontaneous
  Country: US (occurrence: US)
  Receive Date: 20210728
  Receipt Date: 20210728
  Transmission Date: 20211014
  Serious: Yes (Death, Other)
  Sender: FDA-Public Use
  Company Number: US-SA-2021SA248365

PATIENT
  Age: 80 Year
  Sex: Male

DRUGS (1)
  1. ZANTAC [Suspect]
     Active Substance: RANITIDINE HYDROCHLORIDE
     Dosage: QD
     Dates: start: 199301, end: 200212

REACTIONS (4)
  - Prostate cancer [Fatal]
  - Oesophageal carcinoma [Fatal]
  - Colorectal cancer [Fatal]
  - Brain neoplasm malignant [Unknown]

NARRATIVE: CASE EVENT DATE: 20000101
